FAERS Safety Report 4293331-X (Version None)
Quarter: 2004Q1

REPORT INFORMATION
  Report Type: 
  Country: None (occurrence: None)
  Receive Date: 20040126
  Receipt Date: 20031030
  Transmission Date: 20041129
  Serious: No
  Sender: FDA-Public Use
  Company Number: USA031050602

PATIENT
  Age: 68 Year
  Sex: Female

DRUGS (2)
  1. FORTEO [Suspect]
     Indication: OSTEOPOROSIS
     Dosage: 20 UG/DAY
     Dates: start: 20030901
  2. EVISTA [Concomitant]

REACTIONS (7)
  - BACK PAIN [None]
  - DIZZINESS [None]
  - FEELING ABNORMAL [None]
  - HEADACHE [None]
  - PAIN [None]
  - ROTATOR CUFF SYNDROME [None]
  - VERTIGO [None]
